FAERS Safety Report 16114554 (Version 1)
Quarter: 2019Q1

REPORT INFORMATION
  Report Type: Spontaneous
  Country: FR (occurrence: FR)
  Receive Date: 20190325
  Receipt Date: 20190325
  Transmission Date: 20190418
  Serious: Yes (Other)
  Sender: FDA-Public Use
  Company Number: FR-PFIZER INC-2019123654

PATIENT
  Age: 36 Year
  Sex: Female
  Weight: 67.6 kg

DRUGS (16)
  1. LINEZOLIDE KABI [Suspect]
     Active Substance: LINEZOLID
     Indication: SEPTIC SHOCK
     Dosage: UNK
     Route: 041
     Dates: start: 20190210, end: 20190211
  2. AMBISOME [Suspect]
     Active Substance: AMPHOTERICIN B
     Indication: BRONCHOPULMONARY ASPERGILLOSIS
     Dosage: UNK
     Route: 041
     Dates: start: 20190211, end: 20190212
  3. CYTARABINE. [Suspect]
     Active Substance: CYTARABINE
     Indication: ACUTE LYMPHOCYTIC LEUKAEMIA
     Dosage: UNK
     Route: 041
     Dates: start: 20190204, end: 20190209
  4. MIDAZOLAM [Concomitant]
     Active Substance: MIDAZOLAM HYDROCHLORIDE
     Dosage: UNK
  5. IMIPENEM MONOHYDRATE [Concomitant]
     Dosage: UNK
  6. HYDROCORTISONE. [Concomitant]
     Active Substance: HYDROCORTISONE
     Dosage: UNK
  7. CILASTATIN SODIUM [Concomitant]
     Active Substance: CILASTATIN SODIUM
     Dosage: UNK
  8. ERYTHROCINE [ERYTHROMYCIN ETHYLSUCCINATE] [Suspect]
     Active Substance: ERYTHROMYCIN ETHYLSUCCINATE
     Indication: SEPTIC SHOCK
     Dosage: UNK
     Route: 041
     Dates: start: 20190209, end: 20190210
  9. CLOFARABINE. [Suspect]
     Active Substance: CLOFARABINE
     Indication: ACUTE LYMPHOCYTIC LEUKAEMIA
     Dosage: UNK
     Route: 041
     Dates: start: 20190204, end: 20190209
  10. ALBUMIN TANNATE DAINIPPON [Concomitant]
     Dosage: UNK
  11. VORICONAZOLE. [Suspect]
     Active Substance: VORICONAZOLE
     Indication: BRONCHOPULMONARY ASPERGILLOSIS
     Dosage: UNK
     Route: 041
     Dates: start: 20190111, end: 20190211
  12. SUFENTANIL [Concomitant]
     Active Substance: SUFENTANIL
     Dosage: UNK
  13. VALACICLOVIR [Concomitant]
     Active Substance: VALACYCLOVIR HYDROCHLORIDE
     Dosage: UNK
  14. INSULINE [INSULIN PORCINE] [Concomitant]
     Dosage: UNK
  15. VANCOMYCINE SANDOZ [Suspect]
     Active Substance: VANCOMYCIN
     Indication: SEPTIC SHOCK
     Dosage: UNK
     Route: 041
     Dates: start: 20190107, end: 20190210
  16. DAPTOMYCIN. [Concomitant]
     Active Substance: DAPTOMYCIN
     Dosage: UNK

REACTIONS (3)
  - Aspartate aminotransferase increased [None]
  - Alanine aminotransferase increased [None]
  - Hypertransaminasaemia [Recovered/Resolved]

NARRATIVE: CASE EVENT DATE: 20190212
